FAERS Safety Report 17502739 (Version 1)
Quarter: 2020Q1

REPORT INFORMATION
  Report Type: Report from Study
  Country: US (occurrence: US)
  Receive Date: 20200305
  Receipt Date: 20200305
  Transmission Date: 20200409
  Serious: Yes (Hospitalization)
  Sender: FDA-Public Use
  Company Number: US-TAKEDA-2020TUS009600

PATIENT
  Sex: Male

DRUGS (1)
  1. PONATINIB [Suspect]
     Active Substance: PONATINIB
     Indication: ACUTE MYELOID LEUKAEMIA
     Dosage: 30 MILLIGRAM, QD
     Route: 048

REACTIONS (12)
  - Dizziness [Unknown]
  - Asthenia [Unknown]
  - Dyspnoea [Unknown]
  - Flatulence [Unknown]
  - Product dose omission [Unknown]
  - Dehydration [Unknown]
  - Faeces hard [Unknown]
  - Off label use [Unknown]
  - Pain in jaw [Unknown]
  - Sexual dysfunction [Unknown]
  - Headache [Unknown]
  - Constipation [Unknown]
